FAERS Safety Report 9855264 (Version 1)
Quarter: 2013Q4

REPORT INFORMATION
  Report Type: Spontaneous
  Country: US (occurrence: None)
  Receive Date: 20131226
  Receipt Date: 20131226
  Transmission Date: 20140711
  Serious: Yes (Other)
  Sender: FDA-Public Use
  Company Number: PHEH2013US017193

PATIENT
  Age: 36 Year
  Sex: Female
  Weight: 79.8 kg

DRUGS (4)
  1. GILENYA (FINGOLIMOD) CAPSULE, 0.5MG [Suspect]
     Indication: RELAPSING-REMITTING MULTIPLE SCLEROSIS
     Route: 048
     Dates: start: 20130501
  2. RITALIN (METHYLPHENIDATE HYDROCHLORIDE) [Concomitant]
  3. SERTA (SERTRALINE) [Concomitant]
  4. MUVERA (MELOXICAM) [Concomitant]

REACTIONS (2)
  - Lymphopenia [None]
  - Fatigue [None]
